FAERS Safety Report 8559373-0 (Version None)
Quarter: 2012Q3

REPORT INFORMATION
  Report Type: 
  Country: None (occurrence: None)
  Receive Date: 20120802
  Receipt Date: 20120731
  Transmission Date: 20120928
  Serious: Yes (Other)
  Sender: FDA-Public Use
  Company Number: PHHY2012NL054598

PATIENT
  Sex: Male

DRUGS (7)
  1. BICALUTAMIDE [Concomitant]
     Dosage: UNK UKN, UNK
  2. ZOLADEX [Concomitant]
     Dosage: UNK UKN, UNK
  3. ZOMETA [Suspect]
     Indication: PROSTATE CANCER METASTATIC
     Dosage: 4 MG 1X PER 28 DAYS
  4. ZOMETA [Suspect]
     Dosage: 4 MG 1X PER 28 DAYS
     Dates: start: 20090129
  5. ZOMETA [Suspect]
     Dosage: 4 MG 1X PER 28 DAYS
     Dates: start: 20120625
  6. LIPITOR [Concomitant]
     Dosage: UNK UKN, UNK
  7. ZOMETA [Suspect]
     Dosage: 4 MG 1X PER 28 DAYS
     Dates: start: 20120524

REACTIONS (2)
  - PAIN IN JAW [None]
  - OSTEONECROSIS [None]
